FAERS Safety Report 7574160-8 (Version None)
Quarter: 2011Q2

REPORT INFORMATION
  Report Type: 
  Country: None (occurrence: None)
  Receive Date: 20110627
  Receipt Date: 20110616
  Transmission Date: 20111010
  Serious: Yes (Other)
  Sender: FDA-Public Use
  Company Number: PHHY2011AU21984

PATIENT
  Sex: Male

DRUGS (5)
  1. STALEVO 100 [Suspect]
     Dosage: 1 DF, QD
     Route: 048
  2. STALEVO 100 [Suspect]
     Dosage: 2 DF, UNK
     Route: 048
  3. ANTIHYPERTENSIVES [Concomitant]
  4. STALEVO 100 [Suspect]
     Indication: PARKINSON'S DISEASE
     Dosage: 100 MG OF LEVODOPA/ 25 MG OF CARBIDOPA/ 200 MG OF ENTACAPONE
     Route: 048
     Dates: start: 20101001, end: 20101201
  5. MADOPAR [Concomitant]
     Indication: PARKINSON'S DISEASE

REACTIONS (5)
  - WEIGHT DECREASED [None]
  - DIVERTICULUM [None]
  - HAEMATOCHEZIA [None]
  - DIARRHOEA [None]
  - GASTRITIS [None]
